FAERS Safety Report 24788380 (Version 1)
Quarter: 2024Q4

REPORT INFORMATION
  Report Type: Spontaneous
  Country: TR (occurrence: TR)
  Receive Date: 20241230
  Receipt Date: 20241230
  Transmission Date: 20250115
  Serious: Yes (Other)
  Sender: MSN LABORATORIES PRIVATE LIMITED
  Company Number: TR-MSNLABS-2024MSNLIT02853

PATIENT

DRUGS (1)
  1. ERLOTINIB [Suspect]
     Active Substance: ERLOTINIB
     Indication: Lung neoplasm malignant
     Route: 065

REACTIONS (7)
  - Infective keratitis [Recovered/Resolved]
  - Pseudomonas infection [Recovered/Resolved]
  - Ulcerative keratitis [Recovered/Resolved]
  - Blepharitis [Recovered/Resolved]
  - Meibomian gland dysfunction [Recovered/Resolved]
  - Trichomegaly [Not Recovered/Not Resolved]
  - Conjunctivitis [Recovered/Resolved]
